FAERS Safety Report 14803563 (Version 2)
Quarter: 2018Q2

REPORT INFORMATION
  Report Type: Spontaneous
  Country: US (occurrence: US)
  Receive Date: 20180425
  Receipt Date: 20180606
  Transmission Date: 20180711
  Serious: No
  Sender: FDA-Public Use
  Company Number: US-ASTRAZENECA-2018SE40121

PATIENT
  Sex: Female

DRUGS (1)
  1. BYDUREON [Suspect]
     Active Substance: EXENATIDE
     Route: 058

REACTIONS (4)
  - Underdose [Unknown]
  - Abdominal pain upper [Unknown]
  - Lack of injection site rotation [Unknown]
  - Device malfunction [Unknown]

NARRATIVE: CASE EVENT DATE: 20180326
